FAERS Safety Report 23048744 (Version 1)
Quarter: 2023Q4

REPORT INFORMATION
  Report Type: Spontaneous
  Country: US (occurrence: US)
  Receive Date: 20231010
  Receipt Date: 20231010
  Transmission Date: 20240110
  Serious: Yes (Other)
  Sender: FDA-Public Use
  Company Number: US-drreddys-LIT/USA/23/0179115

PATIENT
  Age: 55 Year
  Sex: Female

DRUGS (3)
  1. CYCLOPHOSPHAMIDE [Suspect]
     Active Substance: CYCLOPHOSPHAMIDE
     Indication: Pyoderma gangrenosum
  2. DAPSONE [Suspect]
     Active Substance: DAPSONE
     Indication: Pyoderma gangrenosum
  3. UPADACITINIB [Concomitant]
     Active Substance: UPADACITINIB
     Indication: Product used for unknown indication

REACTIONS (1)
  - Drug ineffective for unapproved indication [Unknown]
